FAERS Safety Report 10614614 (Version 3)
Quarter: 2015Q1

REPORT INFORMATION
  Report Type: Report from Study
  Country: BR (occurrence: BR)
  Receive Date: 20141130
  Receipt Date: 20150210
  Transmission Date: 20150720
  Serious: No
  Sender: FDA-Public Use
  Company Number: BR-BRISTOL-MYERS SQUIBB COMPANY-20693206

PATIENT
  Sex: Female
  Weight: 48 kg

DRUGS (9)
  1. OMEPRAZOL E [Concomitant]
     Active Substance: OMEPRAZOLE
     Indication: DYSPEPSIA
     Dosage: 20 MG, QD
     Route: 065
  2. MICOSTATIN [Concomitant]
     Indication: MOUTH ULCERATION
     Dosage: 10 ML, TID
     Route: 065
  3. FLUOROURACIL. [Concomitant]
     Active Substance: FLUOROURACIL
     Indication: PRODUCT USED FOR UNKNOWN INDICATION
     Route: 065
  4. OMEPRAZOL E [Concomitant]
     Active Substance: OMEPRAZOLE
     Indication: DYSPEPSIA
  5. ONDANSETRON HCL [Concomitant]
     Active Substance: ONDANSETRON HYDROCHLORIDE
     Indication: NAUSEA
     Dosage: 8 MG, TID
     Route: 065
  6. CETUXIMAB [Suspect]
     Active Substance: CETUXIMAB
     Indication: COLORECTAL CANCER
     Dosage: UNK, Q2WK
     Route: 065
  7. DRAMAMINE [Concomitant]
     Active Substance: DIMENHYDRINATE
     Indication: PRODUCT USED FOR UNKNOWN INDICATION
     Route: 065
  8. BUSCOPAN [Concomitant]
     Active Substance: BUTYLSCOPOLAMINE BROMIDE
     Indication: FUNCTIONAL GASTROINTESTINAL DISORDER
     Dosage: UNK
     Route: 065
  9. IMOSEC [Concomitant]
     Active Substance: LOPERAMIDE
     Indication: FUNCTIONAL GASTROINTESTINAL DISORDER
     Dosage: UNK
     Route: 065

REACTIONS (10)
  - Skin reaction [Recovering/Resolving]
  - Pain in extremity [None]
  - Eye haemorrhage [None]
  - Eye disorder [Not Recovered/Not Resolved]
  - Dry skin [Recovering/Resolving]
  - Dizziness [Not Recovered/Not Resolved]
  - Rash macular [Unknown]
  - Nail bed inflammation [Recovering/Resolving]
  - Arthropod sting [None]
  - Skin fissures [Not Recovered/Not Resolved]
